FAERS Safety Report 9889109 (Version 2)
Quarter: 2014Q1

REPORT INFORMATION
  Report Type: Report from Study
  Country: US (occurrence: US)
  Receive Date: 20140211
  Receipt Date: 20140211
  Transmission Date: 20141002
  Serious: Yes (Death)
  Sender: FDA-Public Use
  Company Number: US-DENDREON CORPORATION-2012PROUSA01732

PATIENT
  Age: 67 Year
  Sex: Male
  Weight: 111.11 kg

DRUGS (15)
  1. SIPULEUCEL-T [Suspect]
     Indication: PROSTATE CANCER METASTATIC
     Dosage: 250 ML, SINGLE
     Route: 042
     Dates: start: 20120706, end: 20120706
  2. SIPULEUCEL-T [Suspect]
     Dosage: 250 ML, SINGLE
     Route: 042
     Dates: start: 20120720, end: 20120720
  3. PLAVIX [Concomitant]
     Indication: CARDIAC DISORDER
     Dosage: 75 MG, UNK
  4. DIGOXIN [Concomitant]
     Indication: CARDIAC DISORDER
     Dosage: .25 MG, UNK
  5. BENAZEPRIL [Concomitant]
     Indication: HYPERTENSION
     Dosage: 20 MG, UNK
  6. PRAVASTATIN NA [Concomitant]
     Indication: HYPERLIPIDAEMIA
     Dosage: 40 MG, UNK
  7. HYDROCODONE [Concomitant]
     Indication: PAIN
     Dosage: 7.5/325MG
  8. ALPRAZOLAM [Concomitant]
     Indication: ANXIETY
     Dosage: 0.25 MG, UNK
  9. FUROSEMIDE [Concomitant]
     Indication: OEDEMA
     Dosage: 20 MG, UNK
  10. CARVEDILOL [Concomitant]
     Indication: HYPERTENSION
     Dosage: 6.25 MG, UNK
  11. PRAVASTATIN SODIUM [Concomitant]
     Indication: HYPERLIPIDAEMIA
     Dosage: 40 MG, UNK
  12. ZOMETA [Concomitant]
     Indication: PROSTATE CANCER
     Dosage: UNK
     Dates: start: 20120629
  13. NSAID^S [Concomitant]
     Indication: PRODUCT USED FOR UNKNOWN INDICATION
  14. CASODEX [Concomitant]
     Indication: PROSTATE CANCER
     Dosage: UNK
     Dates: start: 201006
  15. TRELSTAR [Concomitant]
     Indication: PROSTATE CANCER
     Dosage: UNK
     Dates: start: 201107

REACTIONS (1)
  - Disease progression [Fatal]
